FAERS Safety Report 9394775 (Version 3)
Quarter: 2015Q2

REPORT INFORMATION
  Report Type: Spontaneous
  Country: JP (occurrence: JP)
  Receive Date: 20130711
  Receipt Date: 20150604
  Transmission Date: 20150821
  Serious: Yes (Life-Threatening, Other)
  Sender: FDA-Public Use
  Company Number: JP-ASTRAZENECA-2012SE77320

PATIENT
  Age: 22 Year
  Sex: Female
  Weight: 46 kg

DRUGS (6)
  1. ATROPINE SULFATE HYDRATE [Concomitant]
     Active Substance: ATROPINE SULFATE
     Route: 042
     Dates: start: 20111005, end: 20111005
  2. XYLOCAINE [Suspect]
     Active Substance: LIDOCAINE HYDROCHLORIDE
     Indication: LOCAL ANAESTHESIA
     Dosage: AS NEEDED, 1 CC AND AIR 4 CC
     Dates: start: 20111005
  3. XYLOCAINE [Suspect]
     Active Substance: LIDOCAINE HYDROCHLORIDE
     Indication: LOCAL ANAESTHESIA
     Dosage: 800 MG ONCE, (20 ML)
     Route: 049
     Dates: start: 20111005, end: 20111005
  4. MINOPEN [Concomitant]
     Active Substance: MINOCYCLINE HYDROCHLORIDE
     Route: 042
     Dates: start: 20111004
  5. SOSEGON [Concomitant]
     Active Substance: PENTAZOCINE
     Route: 042
     Dates: start: 20111005, end: 20111005
  6. ATARAX-P [Concomitant]
     Active Substance: HYDROXYZINE HYDROCHLORIDE
     Route: 042
     Dates: start: 20111005, end: 20111005

REACTIONS (8)
  - Generalised tonic-clonic seizure [Recovered/Resolved]
  - Pain [Unknown]
  - Shock [Recovered/Resolved]
  - Overdose [Recovered/Resolved]
  - Toxicity to various agents [Recovered/Resolved]
  - Respiratory arrest [Recovering/Resolving]
  - Drug hypersensitivity [Unknown]
  - Cough [Not Recovered/Not Resolved]

NARRATIVE: CASE EVENT DATE: 20111005
